FAERS Safety Report 13560981 (Version 4)
Quarter: 2017Q3

REPORT INFORMATION
  Report Type: Spontaneous
  Country: IN (occurrence: IN)
  Receive Date: 20170518
  Receipt Date: 20170802
  Transmission Date: 20171127
  Serious: Yes (Other)
  Sender: FDA-Public Use
  Company Number: IN-AMGEN-INDSP2017074624

PATIENT
  Age: 75 Year
  Sex: Male

DRUGS (1)
  1. VECTIBIX [Suspect]
     Active Substance: PANITUMUMAB
     Indication: COLORECTAL CANCER METASTATIC
     Dosage: 4 VIALS / 100 MG
     Route: 042
     Dates: start: 20170314

REACTIONS (4)
  - Rash [Unknown]
  - Furuncle [Unknown]
  - Penile abscess [Unknown]
  - Mouth ulceration [Unknown]
